FAERS Safety Report 14564845 (Version 3)
Quarter: 2021Q1

REPORT INFORMATION
  Report Type: Other
  Country: US (occurrence: US)
  Receive Date: 20180223
  Receipt Date: 20210216
  Transmission Date: 20210419
  Serious: Yes (Other)
  Sender: FDA-Public Use
  Company Number: US-ROCHE-2075251

PATIENT
  Age: 50 Year
  Sex: Male
  Weight: 77.18 kg

DRUGS (12)
  1. ATORVASTAN [Concomitant]
     Active Substance: ATORVASTATIN CALCIUM
     Indication: BLOOD CHOLESTEROL INCREASED
     Route: 048
     Dates: start: 201602
  2. OCREVUS [Suspect]
     Active Substance: OCRELIZUMAB
     Route: 042
     Dates: start: 20170906
  3. CLARITIN [Concomitant]
     Active Substance: LORATADINE
     Route: 048
     Dates: start: 2019
  4. TYLENOL [Concomitant]
     Active Substance: ACETAMINOPHEN
     Dates: start: 2019
  5. KEPPRA [Concomitant]
     Active Substance: LEVETIRACETAM
     Indication: SEIZURE
  6. OCREVUS [Suspect]
     Active Substance: OCRELIZUMAB
     Indication: PRIMARY PROGRESSIVE MULTIPLE SCLEROSIS
     Dosage: 06/SEP/2017 AND 27/FEB/2019 ? 600 MG EVERY 26 WEEKS
     Route: 042
     Dates: start: 20170823
  7. OCREVUS [Suspect]
     Active Substance: OCRELIZUMAB
     Route: 042
     Dates: start: 20190227
  8. METHYLPREDNISOLONE. [Concomitant]
     Active Substance: METHYLPREDNISOLONE
  9. SPIRONOLACTONE. [Concomitant]
     Active Substance: SPIRONOLACTONE
     Route: 048
  10. OCREVUS [Suspect]
     Active Substance: OCRELIZUMAB
     Route: 042
     Dates: start: 2017
  11. METOPROLOL TARTRATE. [Concomitant]
     Active Substance: METOPROLOL TARTRATE
     Indication: HYPERTENSION
     Route: 048
     Dates: start: 201602
  12. BENADRYL [Concomitant]
     Active Substance: DIPHENHYDRAMINE HYDROCHLORIDE
     Dosage: ONGOING: UNKNOWN
     Dates: start: 201708, end: 2019

REACTIONS (6)
  - Fatigue [Unknown]
  - Epilepsy [Unknown]
  - Bronchitis [Unknown]
  - Seizure [Recovered/Resolved]
  - JC polyomavirus test positive [Not Recovered/Not Resolved]
  - Platelet disorder [Unknown]

NARRATIVE: CASE EVENT DATE: 201707
